FAERS Safety Report 13370241 (Version 1)
Quarter: 2017Q1

REPORT INFORMATION
  Report Type: Spontaneous
  Country: US (occurrence: US)
  Receive Date: 20170324
  Receipt Date: 20170324
  Transmission Date: 20170429
  Serious: No
  Sender: FDA-Public Use
  Company Number: US-ROCHE-1288945

PATIENT
  Sex: Female

DRUGS (3)
  1. ZIAC (UNITED STATES) [Concomitant]
     Dosage: 10/6.25 MG
     Route: 048
  2. XOLAIR [Suspect]
     Active Substance: OMALIZUMAB
     Indication: URTICARIA
     Route: 058
     Dates: start: 201306
  3. XYZAL [Concomitant]
     Active Substance: LEVOCETIRIZINE DIHYDROCHLORIDE
     Dosage: AS NEEDED
     Route: 048

REACTIONS (5)
  - Alopecia [Not Recovered/Not Resolved]
  - Asthenia [Unknown]
  - Dizziness [Unknown]
  - Urticaria [Unknown]
  - Nausea [Unknown]
